FAERS Safety Report 4511997-3 (Version None)
Quarter: 2004Q4

REPORT INFORMATION
  Report Type: 
  Country: None (occurrence: None)
  Receive Date: 20041129
  Receipt Date: 20040427
  Transmission Date: 20050328
  Serious: Yes (Life-Threatening, Hospitalization)
  Sender: FDA-Public Use
  Company Number: US-BRISTOL-MYERS SQUIBB COMPANY-12575601

PATIENT
  Age: 41 Year
  Sex: Female

DRUGS (3)
  1. SUSTIVA [Suspect]
     Indication: HIV INFECTION
     Route: 048
     Dates: start: 20030528, end: 20030902
  2. TRIZIVIR [Concomitant]
  3. PRENATAL VITAMINS [Concomitant]

REACTIONS (1)
  - HEPATOTOXICITY [None]
